FAERS Safety Report 9624542 (Version 4)
Quarter: 2014Q2

REPORT INFORMATION
  Report Type: Spontaneous
  Country: US (occurrence: US)
  Receive Date: 20131015
  Receipt Date: 20140516
  Transmission Date: 20141212
  Serious: Yes (Hospitalization)
  Sender: FDA-Public Use
  Company Number: US-INCYTE CORPORATION-2013IN002374

PATIENT
  Age: 51 Year
  Sex: Female
  Weight: 58.96 kg

DRUGS (4)
  1. JAKAFI [Suspect]
     Indication: MYELOFIBROSIS
     Dosage: 20 MG, BID
     Route: 048
     Dates: start: 20130913
  2. JAKAFI [Suspect]
     Dosage: 20 MG, BID
     Route: 048
     Dates: start: 20130920
  3. JAKAFI [Suspect]
     Dosage: NOT SPECIFIED
     Route: 048
  4. JAKAFI [Suspect]
     Dosage: 10 MG, 2 TABS IN THE AM AND 1 TAB IN THE EVENING
     Route: 048

REACTIONS (13)
  - Gastrointestinal viral infection [Recovered/Resolved]
  - Full blood count increased [Unknown]
  - Fatigue [Not Recovered/Not Resolved]
  - Asthenia [Unknown]
  - Abdominal discomfort [Unknown]
  - Pain in extremity [Unknown]
  - Dyspnoea [Not Recovered/Not Resolved]
  - Anaemia [Not Recovered/Not Resolved]
  - Haemoglobin decreased [Unknown]
  - Petechiae [Unknown]
  - Headache [Unknown]
  - Dizziness [Unknown]
  - Weight increased [Not Recovered/Not Resolved]
